FAERS Safety Report 4452945-4 (Version None)
Quarter: 2004Q3

REPORT INFORMATION
  Report Type: 
  Country: None (occurrence: None)
  Receive Date: 20040916
  Receipt Date: 20040901
  Transmission Date: 20050211
  Serious: Yes (Hospitalization)
  Sender: FDA-Public Use
  Company Number: 2004US001045

PATIENT
  Age: 56 Year
  Sex: Female
  Weight: 64.9 kg

DRUGS (3)
  1. PROGRAF [Suspect]
     Indication: HEART TRANSPLANT
     Dosage: 2.00, BID, ORAL
     Route: 048
     Dates: start: 20021029
  2. PREDNISONE [Concomitant]
  3. SIROLIMUS (SIROLIMUS) [Concomitant]

REACTIONS (1)
  - CLOSTRIDIUM COLITIS [None]
